FAERS Safety Report 6549475-2 (Version None)
Quarter: 2010Q1

REPORT INFORMATION
  Report Type: 
  Country: None (occurrence: None)
  Receive Date: 20100119
  Receipt Date: 20100108
  Transmission Date: 20100710
  Serious: Yes (Other)
  Sender: FDA-Public Use
  Company Number: 100005

PATIENT
  Age: 44 Year
  Sex: Female
  Weight: 54.4316 kg

DRUGS (2)
  1. HALFLYTELY [Suspect]
     Indication: COLONOSCOPY
     Dosage: 10MG/~1.5L, 1X, PO
     Route: 048
     Dates: start: 20100106
  2. ROWASA [Concomitant]

REACTIONS (2)
  - MALLORY-WEISS SYNDROME [None]
  - OESOPHAGEAL PAIN [None]
